FAERS Safety Report 22601426 (Version 1)
Quarter: 2023Q2

REPORT INFORMATION
  Report Type: Spontaneous
  Country: US (occurrence: US)
  Receive Date: 20230614
  Receipt Date: 20230614
  Transmission Date: 20230721
  Serious: No
  Sender: FDA-Public Use
  Company Number: US-RIGEL Pharmaceuticals, INC-2023FOS000373

PATIENT
  Sex: Female
  Weight: 77.587 kg

DRUGS (2)
  1. TAVALISSE [Suspect]
     Active Substance: FOSTAMATINIB
     Indication: Immune thrombocytopenia
     Dosage: 100 MG, BID
     Route: 048
     Dates: start: 20230220
  2. SOLIFENACIN [Concomitant]
     Active Substance: SOLIFENACIN
     Indication: Micturition urgency
     Dosage: 5 MG, QD
     Route: 065

REACTIONS (2)
  - Platelet count [Unknown]
  - Pharyngitis streptococcal [Unknown]

NARRATIVE: CASE EVENT DATE: 20230101
